FAERS Safety Report 24318155 (Version 5)
Quarter: 2024Q4

REPORT INFORMATION
  Report Type: Spontaneous
  Country: AR (occurrence: AR)
  Receive Date: 20240913
  Receipt Date: 20241114
  Transmission Date: 20250115
  Serious: No
  Sender: PFIZER
  Company Number: AR-PFIZER INC-202400252752

PATIENT
  Age: 11 Year
  Sex: Female
  Weight: 32.4 kg

DRUGS (1)
  1. GENOTROPIN [Suspect]
     Active Substance: SOMATROPIN
     Indication: Foetal growth restriction
     Dosage: 1.8 MG, 6 TIMES A WEEK
     Route: 058
     Dates: start: 20220428

REACTIONS (2)
  - Expired device used [Unknown]
  - Device information output issue [Unknown]
